FAERS Safety Report 4345035-2 (Version None)
Quarter: 2004Q2

REPORT INFORMATION
  Report Type: 
  Country: None (occurrence: None)
  Receive Date: 20040420
  Receipt Date: 20040413
  Transmission Date: 20050107
  Serious: Yes (Hospitalization)
  Sender: FDA-Public Use
  Company Number: 2004CG00692

PATIENT
  Age: 22 Year
  Sex: Male

DRUGS (19)
  1. FOSCAVIR [Suspect]
     Indication: CYTOMEGALOVIRUS INFECTION
  2. OMEPRAZOLE [Suspect]
  3. VENOGLOBULIN [Suspect]
  4. VENOGLOBULIN [Suspect]
  5. ERYTHROMYCIN [Suspect]
  6. BACTRIM [Suspect]
  7. AMPHOTHERICIN [Suspect]
  8. VANCOMYCIN [Suspect]
  9. FORTUM [Suspect]
  10. CIPROFLOXACIN [Suspect]
  11. OFLOCET [Suspect]
  12. SOLU-MEDROL [Suspect]
  13. PROGRAF [Concomitant]
  14. CELLCEPT [Concomitant]
  15. CORTICOSTEROIDS [Concomitant]
  16. CYMEVAN [Concomitant]
  17. HYPNOVEL [Concomitant]
  18. SUFENTA [Concomitant]
  19. GENTAMYCIN-MP [Concomitant]

REACTIONS (8)
  - ACUTE RESPIRATORY DISTRESS SYNDROME [None]
  - CARDIAC TAMPONADE [None]
  - NEUTROPHIL COUNT INCREASED [None]
  - PNEUMOTHORAX [None]
  - PULMONARY ALVEOLAR HAEMORRHAGE [None]
  - RASH PUSTULAR [None]
  - SWEAT GLAND DISORDER [None]
  - TOXIC EPIDERMAL NECROLYSIS [None]
